FAERS Safety Report 5151358-X (Version None)
Quarter: 2006Q4

REPORT INFORMATION
  Report Type: 
  Country: None (occurrence: None)
  Receive Date: 20061115
  Receipt Date: 20060906
  Transmission Date: 20070319
  Serious: Yes (Hospitalization, Other)
  Sender: FDA-Public Use
  Company Number: PHNU2006DE03028

PATIENT
  Age: 73 Year
  Sex: Male

DRUGS (7)
  1. PREDNISOLON [Concomitant]
     Dosage: 4 MG, UNK
     Route: 065
  2. ALLOPURINOL [Concomitant]
     Indication: HYPERURICAEMIA
     Route: 065
  3. APROVEL [Concomitant]
     Indication: HYPERTENSION
     Route: 065
  4. FUROSEMIDE [Concomitant]
     Indication: HYPERTENSION
     Route: 065
  5. RANITIDINE [Concomitant]
     Indication: PROPHYLAXIS
     Route: 065
  6. CODIPRONT [Concomitant]
     Indication: COUGH
     Route: 065
  7. ZOMETA [Suspect]
     Indication: METASTASES TO BONE
     Dosage: 4 MG, QMO
     Route: 042
     Dates: start: 20040326, end: 20060714

REACTIONS (2)
  - INFLAMMATION [None]
  - ORAL SURGERY [None]
